FAERS Safety Report 4745266-3 (Version None)
Quarter: 2005Q3

REPORT INFORMATION
  Report Type: 
  Country: None (occurrence: None)
  Receive Date: 20050812
  Receipt Date: 20050804
  Transmission Date: 20060218
  Serious: Yes (Disabling)
  Sender: FDA-Public Use
  Company Number: 2005-01-1836

PATIENT
  Age: 24 Month
  Sex: Female
  Weight: 8 kg

DRUGS (1)
  1. INTRON A [Suspect]
     Indication: HAEMANGIOMA
     Dosage: 1.2 MIU QD SUBCUTANEOUS
     Route: 058
     Dates: start: 20020319, end: 20021001

REACTIONS (7)
  - BALANCE DISORDER [None]
  - DEVELOPMENTAL DELAY [None]
  - DIPLEGIA [None]
  - GAIT DISTURBANCE [None]
  - MOTOR DYSFUNCTION [None]
  - MUSCULAR WEAKNESS [None]
  - SPASTIC PARALYSIS [None]
